FAERS Safety Report 8967740 (Version 1)
Quarter: 2012Q4

REPORT INFORMATION
  Report Type: Spontaneous
  Country: US (occurrence: None)
  Receive Date: 20121207
  Receipt Date: 20121207
  Transmission Date: 20130627
  Serious: Yes (Death, Hospitalization, Other)
  Sender: FDA-Public Use
  Company Number: 2012P1065876

PATIENT
  Age: 61 Year
  Sex: Female

DRUGS (1)
  1. HEPARIN [Suspect]
     Dosage: 5000 U/ ML; 2 Injections; SC

REACTIONS (14)
  - Heparin-induced thrombocytopenia [None]
  - Portal vein thrombosis [None]
  - Splenic vein thrombosis [None]
  - Mesenteric vein thrombosis [None]
  - Splenic rupture [None]
  - Pulmonary embolism [None]
  - Hepatic infarction [None]
  - Pancreatitis [None]
  - Hypotension [None]
  - Haemoglobin decreased [None]
  - Peritoneal haemorrhage [None]
  - Hypovolaemia [None]
  - Renal infarct [None]
  - Sudden death [None]
